FAERS Safety Report 9167527 (Version 1)
Quarter: 2013Q1

REPORT INFORMATION
  Report Type: Spontaneous
  Country: RU (occurrence: None)
  Receive Date: 20130307
  Receipt Date: 20130307
  Transmission Date: 20140127
  Serious: No
  Sender: FDA-Public Use
  Company Number: 1302RUS007071

PATIENT
  Age: 11 Year
  Sex: Female
  Weight: 52 kg

DRUGS (1)
  1. CEDAX (CEFTIBUTEN) CAPSULE [Suspect]
     Indication: TRACHEITIS
     Dosage: UNK
     Route: 048
     Dates: start: 201211

REACTIONS (1)
  - Alopecia [None]
